FAERS Safety Report 6341390-2 (Version None)
Quarter: 2009Q3

REPORT INFORMATION
  Report Type: 
  Country: None (occurrence: None)
  Receive Date: 20090901
  Receipt Date: 20090901
  Transmission Date: 20100115
  Serious: Yes (Disabling, Other)
  Sender: FDA-Public Use
  Company Number: None

PATIENT
  Age: 57 Year
  Sex: Female
  Weight: 55 kg

DRUGS (5)
  1. ZICAM COLD REMEDY SWABS, (ZINCUM AND GLUCONICUM 2X) ZICAM PHOENIX, AZ [Suspect]
     Indication: NASOPHARYNGITIS
     Dosage: NASAL SWABS-2.1 MG/1 ML INTRANASALLY EVERY 4 HOURS
     Dates: start: 20090502, end: 20090508
  2. GNC TRIFLEX SOFT CHEWABLES [Concomitant]
  3. LINGNISUL MSM [Concomitant]
  4. GLUCOSAMINE [Concomitant]
  5. CHONDROITIN [Concomitant]

REACTIONS (4)
  - ANOSMIA [None]
  - DYSGEUSIA [None]
  - GLOSSODYNIA [None]
  - HYPOGEUSIA [None]
